FAERS Safety Report 10201663 (Version 2)
Quarter: 2014Q2

REPORT INFORMATION
  Report Type: Report from Study
  Country: US (occurrence: US)
  Receive Date: 20140528
  Receipt Date: 20140618
  Transmission Date: 20141212
  Serious: Yes (Life-Threatening, Hospitalization)
  Sender: FDA-Public Use
  Company Number: US-ACTELION-A-US2014-99178

PATIENT
  Age: 14 Year
  Sex: Male

DRUGS (1)
  1. TRACLEER [Suspect]
     Indication: PULMONARY HYPERTENSION
     Dosage: UNK
     Route: 048
     Dates: start: 201212, end: 201404

REACTIONS (4)
  - Lung transplant [Recovering/Resolving]
  - Pulmonary veno-occlusive disease [Recovering/Resolving]
  - Concomitant disease aggravated [Recovering/Resolving]
  - Acute pulmonary oedema [Recovering/Resolving]
